FAERS Safety Report 14013248 (Version 3)
Quarter: 2018Q1

REPORT INFORMATION
  Report Type: Spontaneous
  Country: JP (occurrence: JP)
  Receive Date: 20170926
  Receipt Date: 20180314
  Transmission Date: 20180508
  Serious: Yes (Hospitalization, Other)
  Sender: FDA-Public Use
  Company Number: JP-PFIZER INC-2017349565

PATIENT
  Age: 44 Year
  Sex: Female

DRUGS (3)
  1. INFLIXIMAB [Suspect]
     Active Substance: INFLIXIMAB
     Indication: RHEUMATOID ARTHRITIS
     Dosage: 180 MG, DAILY
     Route: 042
     Dates: start: 20170203, end: 20170203
  2. METHOTREXATE. [Suspect]
     Active Substance: METHOTREXATE
     Indication: RHEUMATOID ARTHRITIS
     Dosage: 12 MG, WEEKLY (1/WEEK)
     Route: 048
     Dates: start: 20110307, end: 20170224
  3. INFLIXIMAB [Suspect]
     Active Substance: INFLIXIMAB
     Dosage: 180 MG, DAILY
     Route: 042
     Dates: start: 20170222, end: 20170222

REACTIONS (6)
  - Nausea [Recovered/Resolved]
  - Lymphoproliferative disorder [Recovering/Resolving]
  - Pyrexia [Recovered/Resolved]
  - Decreased appetite [Recovered/Resolved]
  - Inappropriate schedule of drug administration [Unknown]
  - Anaphylactic shock [Recovering/Resolving]

NARRATIVE: CASE EVENT DATE: 20170222
